FAERS Safety Report 13895727 (Version 2)
Quarter: 2017Q4

REPORT INFORMATION
  Report Type: Spontaneous
  Country: US (occurrence: US)
  Receive Date: 20170823
  Receipt Date: 20171120
  Transmission Date: 20180320
  Serious: No
  Sender: FDA-Public Use
  Company Number: US-PFIZER INC-2017363307

PATIENT
  Age: 53 Year
  Sex: Male

DRUGS (1)
  1. REVATIO [Suspect]
     Active Substance: SILDENAFIL CITRATE
     Indication: ERECTILE DYSFUNCTION
     Dosage: 100 MG (20 MG 5 TIMES PRIOR TO SEX)
     Dates: start: 2017, end: 2017

REACTIONS (2)
  - Product use issue [Unknown]
  - Product use in unapproved indication [Unknown]
